FAERS Safety Report 12173335 (Version 2)
Quarter: 2016Q3

REPORT INFORMATION
  Report Type: Other
  Country: US (occurrence: US)
  Receive Date: 20160311
  Receipt Date: 20160718
  Transmission Date: 20161109
  Serious: Yes (Congenital Anomaly, Other)
  Sender: FDA-Public Use
  Company Number: US-KADMON PHARMACEUTICALS, LLC-KAD201603-000941

PATIENT
  Sex: Female
  Weight: 2.67 kg

DRUGS (2)
  1. RIBAVIRIN. [Suspect]
     Active Substance: RIBAVIRIN
     Route: 064
  2. SOVALDI [Suspect]
     Active Substance: SOFOSBUVIR
     Route: 064

REACTIONS (4)
  - Congenital uterine anomaly [Unknown]
  - Foetal gastrointestinal tract imaging abnormal [Unknown]
  - Foetal exposure during pregnancy [Unknown]
  - Ultrasound antenatal screen abnormal [Unknown]
